FAERS Safety Report 7472502-5 (Version None)
Quarter: 2011Q2

REPORT INFORMATION
  Report Type: 
  Country: None (occurrence: None)
  Receive Date: 20110502
  Receipt Date: 20110419
  Transmission Date: 20111010
  Serious: Yes (Life-Threatening)
  Sender: FDA-Public Use
  Company Number: 144-20484-09051200

PATIENT
  Age: 89 Year
  Sex: Male

DRUGS (4)
  1. ASPIRIN [Concomitant]
  2. OMEPRAZOLE [Concomitant]
  3. ANTICHOLINGERGICS (ANTICHOLINGERGICS) [Concomitant]
  4. INNOHEP [Suspect]
     Indication: THROMBOSIS PROPHYLAXIS
     Dosage: 3500 IU, SUBCUTANEOUS
     Route: 058
     Dates: start: 20090210, end: 20090225

REACTIONS (1)
  - ABDOMINAL WALL HAEMATOMA [None]
